FAERS Safety Report 6580427-2 (Version None)
Quarter: 2010Q1

REPORT INFORMATION
  Report Type: 
  Country: None (occurrence: None)
  Receive Date: 20100212
  Receipt Date: 20100208
  Transmission Date: 20100710
  Serious: Yes (Death)
  Sender: FDA-Public Use
  Company Number: PHHY2010TW05971

PATIENT
  Sex: Male
  Weight: 56 kg

DRUGS (2)
  1. ICL670A ICL+ [Suspect]
     Indication: MYELODYSPLASTIC SYNDROME
     Dosage: 750 MG DAILY (6 TABLETS QD)
     Route: 048
     Dates: start: 20091108, end: 20091202
  2. ICL670A ICL+ [Suspect]
     Dosage: 1000 MG DAILY
     Route: 048
     Dates: start: 20091203, end: 20100117

REACTIONS (1)
  - CARDIAC FAILURE [None]
